FAERS Safety Report 5945586-0 (Version None)
Quarter: 2008Q4

REPORT INFORMATION
  Report Type: 
  Country: None (occurrence: None)
  Receive Date: 20081107
  Receipt Date: 20081028
  Transmission Date: 20090506
  Serious: Yes (Other)
  Sender: FDA-Public Use
  Company Number: US-PFIZER INC-2008091263

PATIENT
  Sex: Male
  Weight: 70.3 kg

DRUGS (7)
  1. GEODON [Suspect]
     Indication: ALCOHOL WITHDRAWAL SYNDROME
     Dates: start: 20081022, end: 20081024
  2. XANAX [Concomitant]
  3. LISINOPRIL [Concomitant]
  4. HALDOL [Concomitant]
     Dates: end: 20081024
  5. LIBRIUM [Concomitant]
     Dates: end: 20081024
  6. ATIVAN [Concomitant]
     Dates: end: 20081024
  7. MORPHINE [Concomitant]
     Dates: end: 20081024

REACTIONS (3)
  - CEREBROVASCULAR ACCIDENT [None]
  - MENTAL DISABILITY [None]
  - SOMNOLENCE [None]
